FAERS Safety Report 4285711-3 (Version None)
Quarter: 2004Q1

REPORT INFORMATION
  Report Type: 
  Country: None (occurrence: None)
  Receive Date: 20040203
  Receipt Date: 20040119
  Transmission Date: 20041129
  Serious: Yes (Other)
  Sender: FDA-Public Use
  Company Number: 2004IM000102

PATIENT
  Age: 67 Year
  Sex: Male

DRUGS (1)
  1. ACTIMMUNE [Suspect]
     Indication: INTERSTITIAL LUNG DISEASE
     Dosage: SUBCUTANEOUS
     Route: 058
     Dates: start: 20030514, end: 20031212

REACTIONS (1)
  - PNEUMONIA [None]
